FAERS Safety Report 6426116-6 (Version None)
Quarter: 2009Q4

REPORT INFORMATION
  Report Type: 
  Country: None (occurrence: None)
  Receive Date: 20091104
  Receipt Date: 20091023
  Transmission Date: 20100525
  Serious: Yes (Death, Hospitalization)
  Sender: FDA-Public Use
  Company Number: FI-JNJFOC-20091008110

PATIENT
  Age: 60 Year
  Sex: Male

DRUGS (3)
  1. REMICADE [Suspect]
     Dosage: RECEIVED 2 INFUSIONS
     Route: 042
     Dates: start: 20090730, end: 20090813
  2. REMICADE [Suspect]
     Indication: PSORIASIS
     Route: 042
     Dates: start: 20090730, end: 20090813
  3. METHOTREXATE [Concomitant]

REACTIONS (4)
  - CONFUSIONAL STATE [None]
  - COUGH [None]
  - PYREXIA [None]
  - RESPIRATORY FAILURE [None]
